FAERS Safety Report 4579648-X (Version None)
Quarter: 2005Q1

REPORT INFORMATION
  Report Type: 
  Country: None (occurrence: None)
  Receive Date: 20050210
  Receipt Date: 20050203
  Transmission Date: 20050727
  Serious: Yes (Hospitalization)
  Sender: FDA-Public Use
  Company Number: 26133

PATIENT
  Age: 83 Year
  Sex: Female

DRUGS (6)
  1. FLECAINE (ORAL) (FLECAINIDE ACETATE) [Suspect]
     Indication: ARRHYTHMIA
     Dosage: ORAL
     Route: 048
  2. SINGULAIR [Suspect]
     Indication: ASTHMA
     Dosage: 10 MG ORAL
     Route: 048
  3. ZANIDIP (LERCANIDIPINE HYDROCHLORIDE) [Suspect]
     Indication: ESSENTIAL HYPERTENSION
     Dosage: 10 MG ORAL
     Route: 048
     Dates: end: 20041218
  4. OMEPRAZOLE [Suspect]
     Indication: DYSPEPSIA
     Dosage: 20 MG ORAL
     Route: 048
  5. PLAVIX [Suspect]
     Indication: ARTERITIS
     Dosage: 75 MG ORAL
     Route: 048
  6. INSULIN NPH U 40 (INSULIN) [Suspect]
     Indication: DIABETES MELLITUS
     Dosage: INJECTION

REACTIONS (11)
  - ATRIOVENTRICULAR BLOCK FIRST DEGREE [None]
  - DEHYDRATION [None]
  - FALL [None]
  - HYPERHIDROSIS [None]
  - HYPOGLYCAEMIA [None]
  - LEUKOARAIOSIS [None]
  - LOSS OF CONSCIOUSNESS [None]
  - MALAISE [None]
  - SKIN INJURY [None]
  - VENTRICULAR EXTRASYSTOLES [None]
  - WOUND [None]
